FAERS Safety Report 7807336-2 (Version None)
Quarter: 2011Q4

REPORT INFORMATION
  Report Type: 
  Country: None (occurrence: None)
  Receive Date: 20111011
  Receipt Date: 20111004
  Transmission Date: 20120403
  Serious: Yes (Other)
  Sender: FDA-Public Use
  Company Number: US-TEVA-303656USA

PATIENT
  Sex: Female

DRUGS (1)
  1. PROAIR HFA [Suspect]
     Dosage: 2 PUFFS  EVERY 4 HRS. PRN
     Dates: start: 20111003, end: 20111003

REACTIONS (2)
  - DEVICE FAILURE [None]
  - CHOKING [None]
